FAERS Safety Report 6272732-4 (Version None)
Quarter: 2009Q3

REPORT INFORMATION
  Report Type: 
  Country: None (occurrence: None)
  Receive Date: 20090717
  Receipt Date: 20090708
  Transmission Date: 20100115
  Serious: Yes (Other)
  Sender: FDA-Public Use
  Company Number: PHHY2009CH27974

PATIENT
  Sex: Male

DRUGS (5)
  1. TEGRETOL [Suspect]
     Dosage: 400 MG/DAY
     Dates: start: 20010101
  2. TYSABRI [Suspect]
     Dosage: UNK, 12 INJECTIONS
     Dates: start: 20080306, end: 20081112
  3. TYSABRI [Suspect]
     Dosage: UNK
     Dates: start: 20090301
  4. SINTROM [Suspect]
     Indication: ABNORMAL CLOTTING FACTOR
     Dosage: 1 MG/DAY
     Dates: start: 20030101
  5. PREDNISONE [Concomitant]
     Dosage: UNK
     Dates: start: 20080701, end: 20090201

REACTIONS (5)
  - GAMMA-GLUTAMYLTRANSFERASE INCREASED [None]
  - NEUROLOGICAL DECOMPENSATION [None]
  - OEDEMA [None]
  - PRURITUS [None]
  - RASH [None]
